FAERS Safety Report 9507430 (Version 1)
Quarter: 2013Q1

REPORT INFORMATION
  Report Type: Spontaneous
  Country: US (occurrence: None)
  Receive Date: 20130305
  Receipt Date: 20130305
  Transmission Date: 20140127
  Serious: Yes (Hospitalization)
  Sender: FDA-Public Use
  Company Number: 163-21880-12021485

PATIENT
  Age: 79 Year
  Sex: Female

DRUGS (6)
  1. REVLIMID (LENALIDOMIDE) (15 MILLIGRAM, CAPSULES) [Suspect]
     Indication: PLASMA CELL MYELOMA
     Dosage: 15 MG, DAILY X 21/28 DAYS, PO
     Route: 048
     Dates: start: 201108
  2. DEXAMETHASONE (DEXAMETHASONE) [Concomitant]
  3. ASA (ACETYLSALICYLIC ACID) [Concomitant]
  4. ONDANSETRON (ONDANSETRON) [Concomitant]
  5. HYDROCODONE/APAP (VICODIN) [Concomitant]
  6. ALLOPURINOL [Concomitant]

REACTIONS (2)
  - Confusional state [None]
  - Asthenia [None]
